FAERS Safety Report 8389928-8 (Version None)
Quarter: 2012Q2

REPORT INFORMATION
  Report Type: 
  Country: None (occurrence: None)
  Receive Date: 20120516
  Receipt Date: 20120509
  Transmission Date: 20120825
  Serious: Yes (Other)
  Sender: FDA-Public Use
  Company Number: DSA_56462_2012

PATIENT
  Age: 45 Year
  Sex: Male

DRUGS (2)
  1. BC ARTHRITIS STRENGTH (NOT SPECIFIED) [Suspect]
     Indication: HEADACHE
     Dosage: DF ORAL
     Route: 048
  2. WELLBUTRIN [Suspect]
     Indication: PRODUCT USED FOR UNKNOWN INDICATION
     Dosage: DF ORAL
     Route: 048

REACTIONS (5)
  - DRUG ADMINISTRATION ERROR [None]
  - DEAFNESS [None]
  - DRUG INTERACTION [None]
  - TINNITUS [None]
  - EAR DISCOMFORT [None]
